FAERS Safety Report 7979627-6 (Version None)
Quarter: 2011Q4

REPORT INFORMATION
  Report Type: 
  Country: None (occurrence: None)
  Receive Date: 20111214
  Receipt Date: 20111211
  Transmission Date: 20120403
  Serious: Yes (Other)
  Sender: FDA-Public Use
  Company Number: US-PFIZER INC-2011301581

PATIENT
  Sex: Female

DRUGS (2)
  1. ZITHROMAX [Suspect]
     Dosage: UNK
     Dates: start: 20111209
  2. TRILEPTAL [Concomitant]
     Dosage: UNK

REACTIONS (5)
  - PRESYNCOPE [None]
  - KINESITHERAPY [None]
  - HYPOTONIA [None]
  - ASTHENIA [None]
  - DIZZINESS [None]
